FAERS Safety Report 4459027-6 (Version None)
Quarter: 2004Q3

REPORT INFORMATION
  Report Type: 
  Country: None (occurrence: None)
  Receive Date: 20040921
  Receipt Date: 20040921
  Transmission Date: 20050211
  Serious: Yes (Hospitalization)
  Sender: FDA-Public Use
  Company Number: None

PATIENT
  Age: 76 Year
  Sex: Female
  Weight: 57 kg

DRUGS (13)
  1. IRESSA [Suspect]
     Indication: LUNG NEOPLASM MALIGNANT
     Dosage: 250 MG EVERY DAY PO
     Route: 048
     Dates: start: 20040310, end: 20040920
  2. FASLODEX [Suspect]
     Indication: LUNG NEOPLASM MALIGNANT
     Dosage: 250 MG 1X PER MONTH IM
     Route: 030
     Dates: start: 20040310, end: 20040920
  3. COZAAR [Concomitant]
  4. TOPROL-XL [Concomitant]
  5. NORVASC [Concomitant]
  6. HYDROCHLOROTHIAZIDE [Concomitant]
  7. ASPIRIN [Concomitant]
  8. VIT E [Concomitant]
  9. CITRUCEL [Concomitant]
  10. MULTI-VITAMIN [Concomitant]
  11. VIT C [Concomitant]
  12. FOLIC ACID [Concomitant]
  13. PREDNISONE [Concomitant]

REACTIONS (1)
  - CEREBROVASCULAR ACCIDENT [None]
